FAERS Safety Report 23181144 (Version 1)
Quarter: 2023Q4

REPORT INFORMATION
  Report Type: Spontaneous
  Country: JP (occurrence: JP)
  Receive Date: 20231114
  Receipt Date: 20231114
  Transmission Date: 20240110
  Serious: Yes (Hospitalization)
  Sender: FDA-Public Use
  Company Number: JP-SCIEGENP-2023SCLIT00652

PATIENT
  Age: 77 Year
  Sex: Female

DRUGS (2)
  1. DONEPEZIL HYDROCHLORIDE [Suspect]
     Active Substance: DONEPEZIL HYDROCHLORIDE
     Indication: Dementia Alzheimer^s type
     Dosage: 15 TABLETS
     Route: 065
  2. DONEPEZIL HYDROCHLORIDE [Suspect]
     Active Substance: DONEPEZIL HYDROCHLORIDE
     Route: 065

REACTIONS (6)
  - Mydriasis [Recovered/Resolved]
  - Respiratory rate increased [Recovered/Resolved]
  - Hypertension [Recovered/Resolved]
  - Miosis [Recovered/Resolved]
  - Postural tremor [Recovered/Resolved]
  - Accidental overdose [Unknown]
